FAERS Safety Report 5738697-6 (Version None)
Quarter: 2008Q2

REPORT INFORMATION
  Report Type: 
  Country: None (occurrence: None)
  Receive Date: 20080512
  Receipt Date: 20080512
  Transmission Date: 20081010
  Serious: No
  Sender: FDA-Public Use
  Company Number: None

PATIENT
  Sex: Female

DRUGS (2)
  1. FEXOFENADINE [Suspect]
     Indication: RHINITIS ALLERGIC
     Dosage: 180 MG PER DAILY
  2. ALLEGRAN [Concomitant]

REACTIONS (4)
  - AGITATION [None]
  - ASTHMA [None]
  - BLOOD PRESSURE INCREASED [None]
  - MUSCLE SPASMS [None]
